FAERS Safety Report 6672655-2 (Version None)
Quarter: 2010Q2

REPORT INFORMATION
  Report Type: 
  Country: None (occurrence: None)
  Receive Date: 20100408
  Receipt Date: 20100326
  Transmission Date: 20101027
  Serious: Yes (Hospitalization)
  Sender: FDA-Public Use
  Company Number: JP-ROCHE-668750

PATIENT
  Sex: Female

DRUGS (16)
  1. TOCILIZUMAB [Suspect]
     Indication: RHEUMATOID ARTHRITIS
     Route: 041
     Dates: start: 20081110, end: 20090508
  2. TOCILIZUMAB [Suspect]
     Route: 041
     Dates: start: 20090609, end: 20090609
  3. TOCILIZUMAB [Suspect]
     Route: 041
     Dates: start: 20090707, end: 20090707
  4. TOCILIZUMAB [Suspect]
     Route: 041
     Dates: start: 20090804, end: 20090804
  5. TOCILIZUMAB [Suspect]
     Route: 041
     Dates: start: 20090908, end: 20090908
  6. TOCILIZUMAB [Suspect]
     Route: 041
     Dates: start: 20091002, end: 20091002
  7. RHEUMATREX [Concomitant]
     Dosage: DIVIDED IN TWO DOSES.
     Route: 048
     Dates: end: 20090507
  8. RHEUMATREX [Concomitant]
     Route: 048
     Dates: start: 20090508, end: 20090706
  9. RHEUMATREX [Concomitant]
     Route: 048
     Dates: start: 20090707
  10. MOBIC [Concomitant]
     Route: 048
  11. FAMOTIDINE [Concomitant]
     Route: 048
  12. ALENDRONATE SODIUM [Concomitant]
     Route: 048
  13. FOLIC ACID [Concomitant]
     Dosage: FORM: PERORAL AGENT
     Route: 048
  14. RHYTHMY [Concomitant]
     Route: 048
  15. ONEALFA [Concomitant]
     Route: 048
  16. MAGLAX [Concomitant]
     Route: 048
     Dates: start: 20090908

REACTIONS (3)
  - ASCITES [None]
  - PERITONITIS [None]
  - RETROPERITONEAL ABSCESS [None]
